FAERS Safety Report 4717422-1 (Version None)
Quarter: 2005Q3

REPORT INFORMATION
  Report Type: 
  Country: None (occurrence: None)
  Receive Date: 20050715
  Receipt Date: 20050630
  Transmission Date: 20060218
  Serious: Yes (Hospitalization, Other)
  Sender: FDA-Public Use
  Company Number: 204055

PATIENT
  Age: 53 Year
  Sex: Female

DRUGS (1)
  1. AVONEX [Suspect]
     Indication: MULTIPLE SCLEROSIS
     Dosage: SEE IMAGE
     Route: 030
     Dates: start: 19960530

REACTIONS (5)
  - CATHETER RELATED INFECTION [None]
  - CENTRAL LINE INFECTION [None]
  - LUNG DISORDER [None]
  - RENAL FAILURE [None]
  - SEPTIC SHOCK [None]
